FAERS Safety Report 25864916 (Version 2)
Quarter: 2025Q4

REPORT INFORMATION
  Report Type: Spontaneous
  Country: EU (occurrence: EU)
  Receive Date: 20250930
  Receipt Date: 20251031
  Transmission Date: 20260118
  Serious: No
  Sender: REGENERON
  Company Number: EU-BAYER-2025A127040

PATIENT
  Age: 72 Year
  Sex: Female

DRUGS (2)
  1. EYLEA HD [Suspect]
     Active Substance: AFLIBERCEPT
     Indication: Neovascular age-related macular degeneration
     Dosage: UNK, 114.3 MG/ML
     Route: 031
     Dates: start: 20250303
  2. EYLEA HD [Suspect]
     Active Substance: AFLIBERCEPT
     Dosage: UNK, 114.3 MG/ML
     Route: 031
     Dates: start: 20250819

REACTIONS (1)
  - Vitreous disorder [Recovered/Resolved]

NARRATIVE: CASE EVENT DATE: 20250822
